FAERS Safety Report 22139751 (Version 2)
Quarter: 2023Q2

REPORT INFORMATION
  Report Type: Report from Study
  Country: US (occurrence: US)
  Receive Date: 20230327
  Receipt Date: 20230510
  Transmission Date: 20230722
  Serious: Yes (Other)
  Sender: FDA-Public Use
  Company Number: US-ABBVIE-4703661

PATIENT
  Age: 59 Year
  Sex: Female
  Weight: 64.41 kg

DRUGS (4)
  1. RINVOQ [Suspect]
     Active Substance: UPADACITINIB
     Indication: Rheumatoid arthritis
     Route: 048
     Dates: start: 202002, end: 202302
  2. RINVOQ [Suspect]
     Active Substance: UPADACITINIB
     Indication: Rheumatoid arthritis
     Route: 048
     Dates: start: 20230313
  3. COVID-19 Pfizer/BioNTech [Concomitant]
     Indication: COVID-19 immunisation
     Dosage: DOSE 1
     Dates: start: 20210420, end: 20210420
  4. COVID-19 Pfizer/BioNTech [Concomitant]
     Indication: COVID-19 immunisation
     Dosage: DOSE 2
     Dates: start: 20210511, end: 20210511

REACTIONS (1)
  - Tooth extraction [Unknown]

NARRATIVE: CASE EVENT DATE: 20230301
